FAERS Safety Report 20085067 (Version 1)
Quarter: 2021Q4

REPORT INFORMATION
  Report Type: Spontaneous
  Country: US (occurrence: US)
  Receive Date: 20211118
  Receipt Date: 20211118
  Transmission Date: 20220303
  Serious: Yes (Life-Threatening, Hospitalization)
  Sender: FDA-Public Use
  Company Number: US-JNJFOC-20211118479

PATIENT
  Age: 37 Year
  Sex: Female
  Weight: 66 kg

DRUGS (3)
  1. TYLENOL [Suspect]
     Active Substance: ACETAMINOPHEN
     Indication: Product used for unknown indication
     Dosage: CHRONIC USE
     Route: 048
  2. VICODIN [Suspect]
     Active Substance: ACETAMINOPHEN\HYDROCODONE BITARTRATE
     Indication: Product used for unknown indication
     Route: 048
  3. UNSPECIFIED INGREDIENT [Concomitant]
     Active Substance: UNSPECIFIED INGREDIENT
     Indication: Product used for unknown indication
     Route: 065

REACTIONS (8)
  - Acute hepatic failure [Unknown]
  - Arrhythmia [Unknown]
  - Blood creatinine increased [Recovered/Resolved]
  - Blood urea increased [Unknown]
  - Blood calcium decreased [Unknown]
  - Chest X-ray abnormal [Unknown]
  - Brain oedema [Unknown]
  - Accidental overdose [Unknown]

NARRATIVE: CASE EVENT DATE: 19991126
